FAERS Safety Report 4877266-7 (Version None)
Quarter: 2006Q1

REPORT INFORMATION
  Report Type: 
  Country: None (occurrence: None)
  Receive Date: 20060109
  Receipt Date: 20060102
  Transmission Date: 20060701
  Serious: Yes (Hospitalization)
  Sender: FDA-Public Use
  Company Number: WAES 0601TWN00002

PATIENT
  Age: 81 Year
  Sex: Male

DRUGS (1)
  1. COZAAR [Suspect]
     Indication: CARDIAC FAILURE CONGESTIVE
     Dosage: PO
     Route: 048
     Dates: start: 20030710, end: 20051226

REACTIONS (12)
  - CARDIAC ENZYMES INCREASED [None]
  - CATHETER RELATED COMPLICATION [None]
  - CHEST PAIN [None]
  - DECREASED APPETITE [None]
  - LEUKOCYTOSIS [None]
  - NAUSEA [None]
  - PAIN [None]
  - PYURIA [None]
  - RENAL FAILURE ACUTE [None]
  - SEPTIC SHOCK [None]
  - UROSEPSIS [None]
  - VOMITING [None]
